FAERS Safety Report 5297239-2 (Version None)
Quarter: 2007Q2

REPORT INFORMATION
  Report Type: 
  Country: None (occurrence: None)
  Receive Date: 20070416
  Receipt Date: 20070405
  Transmission Date: 20071010
  Serious: Yes (Hospitalization)
  Sender: FDA-Public Use
  Company Number: US-JNJFOC-20070401524

PATIENT
  Sex: Female
  Weight: 31.75 kg

DRUGS (7)
  1. REMICADE [Suspect]
     Route: 042
  2. REMICADE [Suspect]
     Indication: CROHN'S DISEASE
     Dosage: RECEIVED ONE INFUSION ^YEARS AGO^.
     Route: 042
  3. PENTASA [Concomitant]
     Indication: CROHN'S DISEASE
  4. FLAGYL [Concomitant]
     Indication: CROHN'S DISEASE
  5. ASCORBIC ACID [Concomitant]
  6. LEVAQUIN [Concomitant]
  7. PROBIOTICS [Concomitant]
     Indication: CROHN'S DISEASE

REACTIONS (8)
  - BONE PAIN [None]
  - FEELING HOT [None]
  - FLUSHING [None]
  - PAIN [None]
  - PHARYNGOLARYNGEAL PAIN [None]
  - PYREXIA [None]
  - RASH [None]
  - RESPIRATORY TRACT CONGESTION [None]
